FAERS Safety Report 5713787-2 (Version None)
Quarter: 2008Q2

REPORT INFORMATION
  Report Type: 
  Country: None (occurrence: None)
  Receive Date: 20080421
  Receipt Date: 20080410
  Transmission Date: 20081010
  Serious: Yes (Death, Hospitalization)
  Sender: FDA-Public Use
  Company Number: 2008US000585

PATIENT
  Age: 25 Year
  Sex: Female
  Weight: 60.3 kg

DRUGS (5)
  1. PROGRAF [Suspect]
     Indication: LIVER TRANSPLANT
     Dosage: 2 MG, BID,
  2. PRECOSE [Concomitant]
  3. INSULIN (INSULIN HUMAN) [Concomitant]
  4. IMURAN [Concomitant]
  5. PREDNISOLONE ACETATE [Concomitant]

REACTIONS (7)
  - BLOOD CHLORIDE DECREASED [None]
  - BLOOD GLUCOSE INCREASED [None]
  - BLOOD PHOSPHORUS DECREASED [None]
  - BLOOD SODIUM DECREASED [None]
  - BLOOD UREA INCREASED [None]
  - CARBON DIOXIDE INCREASED [None]
  - LIVER TRANSPLANT REJECTION [None]
